FAERS Safety Report 20518377 (Version 1)
Quarter: 2022Q1

REPORT INFORMATION
  Report Type: Spontaneous
  Country: US (occurrence: US)
  Receive Date: 20220225
  Receipt Date: 20220225
  Transmission Date: 20220423
  Serious: Yes (Disabling, Other)
  Sender: FDA-Public Use
  Company Number: US-BAYER-2022A028873

PATIENT
  Age: 27 Year
  Sex: Female

DRUGS (1)
  1. MIRENA [Suspect]
     Active Substance: LEVONORGESTREL
     Dosage: 20?G/DAY
     Route: 015
     Dates: start: 202012, end: 202101

REACTIONS (11)
  - Uterine perforation [None]
  - Abdominal pain [None]
  - Premature menopause [None]
  - Procedural pain [None]
  - Post procedural haemorrhage [Recovering/Resolving]
  - Drug withdrawal syndrome [None]
  - Weight increased [None]
  - Phlebitis [None]
  - Hormone level abnormal [None]
  - Anxiety [None]
  - Infertility female [None]

NARRATIVE: CASE EVENT DATE: 20201201
